FAERS Safety Report 9324909 (Version 2)
Quarter: 2013Q3

REPORT INFORMATION
  Report Type: Spontaneous
  Country: AU (occurrence: AU)
  Receive Date: 20130603
  Receipt Date: 20130702
  Transmission Date: 20140515
  Serious: Yes (Death, Hospitalization)
  Sender: FDA-Public Use
  Company Number: AU-ACTELION-A-CH2013-83659

PATIENT
  Age: 34 Year
  Sex: Female

DRUGS (20)
  1. TRACLEER [Suspect]
     Indication: PULMONARY ARTERIAL HYPERTENSION
     Dosage: 125 MG, BID
     Route: 048
     Dates: start: 200810, end: 20130517
  2. FERROUS SULFATE [Concomitant]
  3. PROMETHAZINE [Concomitant]
  4. PREDNISOLONE [Concomitant]
  5. BACTRIM DS [Concomitant]
  6. LASIX [Concomitant]
  7. HYDROCHLOROTHIAZIDE [Concomitant]
  8. POTASSIUM CHLORIDE [Concomitant]
  9. SPIRONOLACTONE [Concomitant]
  10. METOCLOPRAMIDE [Concomitant]
  11. ONDANSETRON [Concomitant]
  12. RITUXIMAB [Concomitant]
  13. ESCITALOPRAM [Concomitant]
  14. LORAZEPAM [Concomitant]
  15. OXAZEPAM [Concomitant]
  16. MORPHINE [Concomitant]
  17. OXYCODONE [Concomitant]
  18. NEXIUM [Concomitant]
  19. SILDENAFIL [Concomitant]
  20. MAGNESIUM [Concomitant]

REACTIONS (5)
  - Pulmonary arterial hypertension [Fatal]
  - Condition aggravated [Fatal]
  - Disease progression [Fatal]
  - Systemic sclerosis [Fatal]
  - Interstitial lung disease [Fatal]
